FAERS Safety Report 12208933 (Version 3)
Quarter: 2016Q2

REPORT INFORMATION
  Report Type: Spontaneous
  Country: US (occurrence: US)
  Receive Date: 20160324
  Receipt Date: 20160506
  Transmission Date: 20160815
  Serious: Yes (Hospitalization, Other)
  Sender: FDA-Public Use
  Company Number: US-PFIZER INC-2016173945

PATIENT
  Age: 61 Year
  Sex: Male
  Weight: 104 kg

DRUGS (10)
  1. RAPAMUNE [Suspect]
     Active Substance: SIROLIMUS
     Indication: LIVER TRANSPLANT
     Dosage: 3 MG, 1X/DAY
     Route: 048
  2. RAPAMUNE [Suspect]
     Active Substance: SIROLIMUS
     Dosage: 1 MG, 1X/DAY
     Route: 048
  3. NEXIUM [Concomitant]
     Active Substance: ESOMEPRAZOLE MAGNESIUM
     Indication: GASTRIC DISORDER
     Dosage: UNK
  4. CALCITONIN SALMON. [Concomitant]
     Active Substance: CALCITONIN SALMON
     Indication: BONE DISORDER
     Dosage: 2 DF, 1X/DAY
     Route: 045
  5. FUROSEMIDE. [Concomitant]
     Active Substance: FUROSEMIDE
     Dosage: UNK
  6. VITAMIN D /00107901/ [Concomitant]
     Active Substance: ERGOCALCIFEROL
     Indication: OSTEOPOROSIS
     Dosage: 2000 IU, 1X/DAY
  7. RAPAMUNE [Suspect]
     Active Substance: SIROLIMUS
     Dosage: 2 MG, 1X/DAY
     Route: 048
  8. METOPROLOL. [Concomitant]
     Active Substance: METOPROLOL
     Indication: HYPERTENSION
     Dosage: 25 MG, 2X/DAY
  9. SODIUM BICARBONATE. [Concomitant]
     Active Substance: SODIUM BICARBONATE
     Indication: ACIDOSIS
     Dosage: 80 MG, 1X/DAY
  10. LISINOPRIL. [Concomitant]
     Active Substance: LISINOPRIL
     Indication: HYPERTENSION
     Dosage: 10 MG, DAILY
     Route: 048
     Dates: end: 201604

REACTIONS (13)
  - Traumatic lung injury [Not Recovered/Not Resolved]
  - Malaise [Unknown]
  - Intentional product use issue [Not Recovered/Not Resolved]
  - Pneumonia [Recovered/Resolved with Sequelae]
  - Rib fracture [Recovering/Resolving]
  - Fatigue [Unknown]
  - Blood creatinine increased [Recovered/Resolved]
  - Immunosuppressant drug level increased [Not Recovered/Not Resolved]
  - Product use issue [Unknown]
  - Renal disorder [Recovered/Resolved]
  - Asthenia [Unknown]
  - Blood cholesterol increased [Not Recovered/Not Resolved]
  - Myocardial infarction [Recovered/Resolved]

NARRATIVE: CASE EVENT DATE: 201604
